FAERS Safety Report 7939444-X (Version None)
Quarter: 2011Q4

REPORT INFORMATION
  Report Type: 
  Country: None (occurrence: None)
  Receive Date: 20111125
  Receipt Date: 20111117
  Transmission Date: 20120403
  Serious: Yes (Hospitalization)
  Sender: FDA-Public Use
  Company Number: DE-ROCHE-1014379

PATIENT
  Sex: Female

DRUGS (5)
  1. ARCOXIA [Concomitant]
     Dosage: FREQUENCY: AS REQUIRED.
  2. ACTEMRA [Suspect]
     Indication: RHEUMATOID ARTHRITIS
     Dates: start: 20090901
  3. METHOTREXATE [Concomitant]
     Indication: RHEUMATOID ARTHRITIS
     Dates: start: 19950101, end: 20090901
  4. SULFASALAZINA [Concomitant]
     Indication: RHEUMATOID ARTHRITIS
     Dates: start: 20090601, end: 20091001
  5. PREDNISOLONE [Concomitant]

REACTIONS (1)
  - HIP ARTHROPLASTY [None]
